APPROVED DRUG PRODUCT: LIDOCAINE
Active Ingredient: LIDOCAINE
Strength: 5%
Dosage Form/Route: PATCH;TOPICAL
Application: A205882 | Product #001 | TE Code: AB
Applicant: NAL PHARMACEUTICAL GROUP LTD
Approved: Apr 29, 2021 | RLD: No | RS: No | Type: RX